FAERS Safety Report 24778406 (Version 1)
Quarter: 2024Q4

REPORT INFORMATION
  Report Type: Spontaneous
  Country: US (occurrence: US)
  Receive Date: 20241226
  Receipt Date: 20241226
  Transmission Date: 20250114
  Serious: No
  Sender: SANOFI AVENTIS
  Company Number: US-SA-2024SA381568

PATIENT
  Age: 62 Year
  Sex: Female
  Weight: 56.69 kg

DRUGS (10)
  1. KEVZARA [Suspect]
     Active Substance: SARILUMAB
     Indication: Rheumatoid arthritis
     Dosage: 150 MG, QOW
     Route: 058
     Dates: start: 20241118, end: 2024
  2. OMEPRAZOLE [Concomitant]
     Active Substance: OMEPRAZOLE
  3. METFORMIN HYDROCHLORIDE [Concomitant]
     Active Substance: METFORMIN HYDROCHLORIDE
  4. GABAPENTIN [Concomitant]
     Active Substance: GABAPENTIN
  5. PREDNISONE [Concomitant]
     Active Substance: PREDNISONE
  6. MAGNESIUM [Concomitant]
     Active Substance: MAGNESIUM
  7. ALENDRONATE SODIUM [Concomitant]
     Active Substance: ALENDRONATE SODIUM
  8. FAMOTIDINE [Concomitant]
     Active Substance: FAMOTIDINE
  9. LOSARTAN POTASSIUM [Concomitant]
     Active Substance: LOSARTAN POTASSIUM
  10. ROSUVASTATIN CALCIUM [Concomitant]
     Active Substance: ROSUVASTATIN CALCIUM

REACTIONS (6)
  - Contusion [Recovered/Resolved]
  - Dysphagia [Recovered/Resolved]
  - Rash macular [Recovered/Resolved]
  - Injection site swelling [Recovered/Resolved]
  - Injection site urticaria [Recovered/Resolved]
  - Injection site erythema [Recovered/Resolved]

NARRATIVE: CASE EVENT DATE: 20241118
